FAERS Safety Report 9442343 (Version 2)
Quarter: 2013Q3

REPORT INFORMATION
  Report Type: Spontaneous
  Country: DE (occurrence: DE)
  Receive Date: 20130806
  Receipt Date: 20130920
  Transmission Date: 20140515
  Serious: Yes (Hospitalization)
  Sender: FDA-Public Use
  Company Number: DE-ELI_LILLY_AND_COMPANY-DE201308000031

PATIENT
  Age: 69 Year
  Sex: Female
  Weight: 90 kg

DRUGS (13)
  1. EFIENT [Suspect]
     Indication: ACUTE CORONARY SYNDROME
     Dosage: 10 MG, UNKNOWN
     Route: 048
     Dates: start: 20121208, end: 20130306
  2. EFIENT [Suspect]
     Dosage: UNK
     Dates: start: 20130402, end: 20130716
  3. EFIENT [Suspect]
     Dosage: UNK
     Dates: start: 20130716
  4. TICAGRELOR [Concomitant]
     Dosage: UNK
     Dates: start: 20130306, end: 20130402
  5. METOPROLOL [Concomitant]
     Dosage: 95 MG, UNK
     Dates: start: 20111118
  6. DIOVAN [Concomitant]
  7. NEBILET [Concomitant]
  8. AMLODIPIN                          /00972401/ [Concomitant]
  9. PANTOPRAZOL [Concomitant]
  10. TOREM [Concomitant]
  11. RANEXA [Concomitant]
     Dosage: 375 MG, UNK
  12. SIMVASTATIN [Concomitant]
  13. ASPIRIN [Concomitant]

REACTIONS (1)
  - Thrombosis in device [Recovered/Resolved]
